FAERS Safety Report 6082561-2 (Version None)
Quarter: 2009Q1

REPORT INFORMATION
  Report Type: 
  Country: None (occurrence: None)
  Receive Date: 20090218
  Receipt Date: 20090209
  Transmission Date: 20090719
  Serious: Yes (Other)
  Sender: FDA-Public Use
  Company Number: US-PURDUE-USA_2009_0036933

PATIENT
  Age: 46 Year
  Sex: Female

DRUGS (7)
  1. OXYCONTIN [Suspect]
     Indication: FIBROMYALGIA
     Dosage: 40 MG, 5/DAY
     Route: 048
  2. OXYCODONE HCL EXTENDED-RELEASE [Concomitant]
     Indication: RHEUMATOID ARTHRITIS
     Dosage: UNK MG, UNK
     Route: 048
     Dates: end: 20070101
  3. EFFEXOR [Concomitant]
     Indication: HOT FLUSH
     Dosage: 375 MG, DAILY
     Route: 048
     Dates: start: 20060101
  4. CELEBREX [Concomitant]
     Indication: RHEUMATOID ARTHRITIS
     Dosage: UNK MG, BID
     Route: 048
  5. NEXIUM [Concomitant]
     Indication: BARRETT'S OESOPHAGUS
     Dosage: UNK MG, BID
     Route: 048
  6. DITROPAN XL [Concomitant]
     Indication: HYPERTONIC BLADDER
     Dosage: 1 TABLET, DAILY
     Route: 048
  7. WARFARIN                           /00014802/ [Concomitant]
     Indication: ANTICOAGULANT THERAPY
     Dosage: UNK MG, SEE TEXT
     Route: 048
     Dates: start: 20030101

REACTIONS (8)
  - DENTAL CARIES [None]
  - DRY MOUTH [None]
  - GAIT DISTURBANCE [None]
  - LIP DRY [None]
  - LUNG INFECTION [None]
  - PULMONARY EMBOLISM [None]
  - STOMATITIS [None]
  - TOOTH FRACTURE [None]
